FAERS Safety Report 9378951 (Version 1)
Quarter: 2013Q2

REPORT INFORMATION
  Report Type: Spontaneous
  Country: US (occurrence: None)
  Receive Date: 20130626
  Receipt Date: 20130626
  Transmission Date: 20140414
  Serious: Yes (Life-Threatening, Hospitalization, Other)
  Sender: FDA-Public Use
  Company Number: 001551136A

PATIENT
  Age: 49 Year
  Sex: Female

DRUGS (4)
  1. MEANINGFUL BEAUTY ANTIOXIDANT DAY CREME SPF 20 [Suspect]
     Dosage: ONCE DAILY DERMAL
     Dates: start: 20130526, end: 20130528
  2. MEANINGFUL BEAUTY SKIN BRIGHTENING DECOLLETE NECK TREATMENT W/SPF 15 UVA/UVB [Suspect]
     Dosage: ONCE DAILY DERMAL?
     Dates: start: 20130526, end: 20130528
  3. SYNTHROID [Concomitant]
  4. VITAMIN B12 [Concomitant]

REACTIONS (4)
  - Septic shock [None]
  - Vomiting [None]
  - Dizziness [None]
  - Blood pressure decreased [None]
